FAERS Safety Report 8200138-7 (Version None)
Quarter: 2012Q1

REPORT INFORMATION
  Report Type: 
  Country: None (occurrence: None)
  Receive Date: 20120312
  Receipt Date: 20120227
  Transmission Date: 20120608
  Serious: Yes (Hospitalization)
  Sender: FDA-Public Use
  Company Number: US-BAYER-2011-023232

PATIENT
  Age: 36 Year
  Sex: Female
  Weight: 79.819 kg

DRUGS (14)
  1. ASCORBIC ACID [Concomitant]
  2. YAZ [Suspect]
  3. METFORMIN HYDROCHLORIDE [Concomitant]
     Indication: HORMONE LEVEL ABNORMAL
     Dosage: 500 MG, UNK
     Dates: start: 20070101
  4. YAZ [Suspect]
     Indication: PREMENSTRUAL SYNDROME
     Dosage: UNK
     Dates: start: 20070601, end: 20090301
  5. CLONAZEPAM [Concomitant]
     Indication: ANXIETY
     Dosage: UNK
     Dates: start: 20070101
  6. PROVENTIL [Concomitant]
  7. ZYRTEC [Concomitant]
     Indication: SEASONAL ALLERGY
  8. LORAZEPAM [Concomitant]
     Indication: ANXIETY
     Dosage: UNK
     Dates: start: 20070101, end: 20090301
  9. ZYRTEC [Concomitant]
     Indication: HYPERSENSITIVITY
     Dosage: 10 MG, UNK
  10. USANA MULTIMINERAL [Concomitant]
  11. YAZ [Suspect]
     Indication: MENSTRUATION IRREGULAR
  12. ASPIRIN [Concomitant]
  13. YAZ [Suspect]
     Indication: CONTRACEPTION
  14. BUSPIRONE HCL [Concomitant]
     Indication: ANXIETY
     Dosage: UNK
     Dates: start: 20090101

REACTIONS (8)
  - ANXIETY [None]
  - EMOTIONAL DISTRESS [None]
  - DEPRESSION [None]
  - PAIN [None]
  - ANHEDONIA [None]
  - DEEP VEIN THROMBOSIS [None]
  - PSYCHOLOGICAL TRAUMA [None]
  - FEAR [None]
